FAERS Safety Report 24167764 (Version 1)
Quarter: 2024Q3

REPORT INFORMATION
  Report Type: Spontaneous
  Country: US (occurrence: None)
  Receive Date: 20240801
  Receipt Date: 20240801
  Transmission Date: 20241016
  Serious: Yes (unspecified)
  Sender: Public
  Company Number: None

PATIENT
  Age: 36 Year
  Sex: Female
  Weight: 119.7 kg

DRUGS (1)
  1. TYSABRI [Suspect]
     Active Substance: NATALIZUMAB
     Indication: Multiple sclerosis
     Dosage: 300 MG MONTHLY INTRA ENOUS?
     Route: 042
     Dates: start: 20240528

REACTIONS (5)
  - Infusion related reaction [None]
  - Chest discomfort [None]
  - Dyspnoea [None]
  - Muscle spasms [None]
  - Intentional product use issue [None]

NARRATIVE: CASE EVENT DATE: 20240731
